FAERS Safety Report 9173108 (Version 1)
Quarter: 2013Q1

REPORT INFORMATION
  Report Type: Spontaneous
  Country: US (occurrence: None)
  Receive Date: 20130319
  Receipt Date: 20130319
  Transmission Date: 20140127
  Serious: No
  Sender: FDA-Public Use
  Company Number: None

PATIENT
  Sex: Male

DRUGS (1)
  1. LAMICTAL 100MG [Suspect]
     Indication: EPILEPSY
     Route: 048
     Dates: start: 200702

REACTIONS (3)
  - Tremor [None]
  - Convulsion [None]
  - Convulsion [None]
